FAERS Safety Report 7865853-3 (Version None)
Quarter: 2011Q4

REPORT INFORMATION
  Report Type: 
  Country: None (occurrence: None)
  Receive Date: 20111028
  Receipt Date: 20110309
  Transmission Date: 20120403
  Serious: No
  Sender: FDA-Public Use
  Company Number: US-GLAXOSMITHKLINE-A0917383A

PATIENT
  Age: 55 Year
  Sex: Female

DRUGS (4)
  1. ZOCOR [Concomitant]
  2. HYDROCHLOROTHIAZIDE [Concomitant]
  3. METFORMIN HCL [Concomitant]
  4. ADVAIR DISKUS 100/50 [Suspect]
     Indication: ASTHMA
     Dosage: 1PUFF TWICE PER DAY
     Route: 055
     Dates: start: 20110220, end: 20110309

REACTIONS (5)
  - MUSCLE SPASMS [None]
  - RASH [None]
  - DIARRHOEA [None]
  - CONSTIPATION [None]
  - DIZZINESS [None]
